FAERS Safety Report 23532149 (Version 1)
Quarter: 2024Q1

REPORT INFORMATION
  Report Type: Spontaneous
  Country: US (occurrence: US)
  Receive Date: 20240216
  Receipt Date: 20240216
  Transmission Date: 20240410
  Serious: No
  Sender: FDA-Public Use
  Company Number: US-SA-SAC20240208000523

PATIENT
  Age: 71 Year
  Sex: Female
  Weight: 61 kg

DRUGS (9)
  1. DUPIXENT [Suspect]
     Active Substance: DUPILUMAB
     Indication: Nasal polyps
     Dosage: 300 MG, QOW
     Route: 058
     Dates: start: 20240102
  2. CALCIUM [Concomitant]
     Active Substance: CALCIUM
  3. FLONASE ALLERGY RELIEF [Concomitant]
     Active Substance: FLUTICASONE PROPIONATE
     Dosage: 10MG
  4. FLOVENT [Concomitant]
     Active Substance: FLUTICASONE PROPIONATE
  5. LATANOPROST [Concomitant]
     Active Substance: LATANOPROST
     Dosage: 10MGS
  6. SINGULAIR [Concomitant]
     Active Substance: MONTELUKAST SODIUM
  7. SYNTHROID [Concomitant]
     Active Substance: LEVOTHYROXINE SODIUM
  8. VITAMIN D3 [Concomitant]
     Active Substance: CHOLECALCIFEROL
  9. XHANCE [Concomitant]
     Active Substance: FLUTICASONE PROPIONATE

REACTIONS (2)
  - Injection site vesicles [Unknown]
  - Rash [Unknown]

NARRATIVE: CASE EVENT DATE: 20240101
